FAERS Safety Report 23157123 (Version 1)
Quarter: 2023Q4

REPORT INFORMATION
  Report Type: Spontaneous
  Country: US (occurrence: US)
  Receive Date: 20231108
  Receipt Date: 20231108
  Transmission Date: 20240109
  Serious: Yes (Other)
  Sender: FDA-Public Use
  Company Number: US-BRISTOL-MYERS SQUIBB COMPANY-2023-156211

PATIENT
  Age: 70 Year
  Sex: Male
  Weight: 56.25 kg

DRUGS (26)
  1. POMALYST [Suspect]
     Active Substance: POMALIDOMIDE
     Indication: Plasma cell myeloma
     Dosage: DAILY DAYS 1-14 EVERY 28 DAYS
     Route: 048
     Dates: start: 20211202
  2. DIFLUCAN [Concomitant]
     Active Substance: FLUCONAZOLE
  3. DERMAREST PSORIASIS [Concomitant]
  4. KETOCONAZOLE [Concomitant]
     Active Substance: KETOCONAZOLE
  5. CLOBETASOL PROPIONATE [Concomitant]
     Active Substance: CLOBETASOL PROPIONATE
  6. NITROGLYCERIN [Concomitant]
     Active Substance: NITROGLYCERIN
  7. ZOLEDRONIC ACID [Concomitant]
     Active Substance: ZOLEDRONIC ACID
  8. POTASSIUM CHLORIDE EXTENDED RELEASE [Concomitant]
     Active Substance: POTASSIUM CHLORIDE
  9. CLARITIN REDITABS [Concomitant]
     Active Substance: LORATADINE
  10. METHOCARBAMOL [Concomitant]
     Active Substance: METHOCARBAMOL
  11. ASPIRIN [Concomitant]
     Active Substance: ASPIRIN
  12. METHYLPREDNISOLONE [Concomitant]
     Active Substance: METHYLPREDNISOLONE
  13. DARZALEX [Concomitant]
     Active Substance: DARATUMUMAB
  14. METOPROLOL TARTRATE [Concomitant]
     Active Substance: METOPROLOL TARTRATE
  15. DECADRON [Concomitant]
     Active Substance: DEXAMETHASONE
  16. ACYCLOVIR [Concomitant]
     Active Substance: ACYCLOVIR
  17. VITAMIN D3 [Concomitant]
     Active Substance: CHOLECALCIFEROL
  18. BIOTIN [Concomitant]
     Active Substance: BIOTIN
  19. MAGNESIUM OXIDE [Concomitant]
     Active Substance: MAGNESIUM OXIDE
  20. FOLIC ACID [Concomitant]
     Active Substance: FOLIC ACID
  21. CLOBETASOL PROPIONATE [Concomitant]
     Active Substance: CLOBETASOL PROPIONATE
  22. NEXIUM I.V. [Concomitant]
     Active Substance: ESOMEPRAZOLE SODIUM
  23. PEPCID [Concomitant]
     Active Substance: FAMOTIDINE
  24. CARAFATE [Concomitant]
     Active Substance: SUCRALFATE
  25. VITAMIN B COMPLEX [Concomitant]
     Active Substance: CYANOCOBALAMIN\DEXPANTHENOL\NIACINAMIDE\PYRIDOXINE HYDROCHLORIDE\RIBOFLAVIN 5^-PHOSPHATE SODIUM\THIA
  26. ERYTHROMYCIN [Concomitant]
     Active Substance: ERYTHROMYCIN

REACTIONS (2)
  - Plasma cell myeloma [Unknown]
  - Off label use [Unknown]
